FAERS Safety Report 24799875 (Version 1)
Quarter: 2025Q1

REPORT INFORMATION
  Report Type: Spontaneous
  Country: GB (occurrence: GB)
  Receive Date: 20250102
  Receipt Date: 20250102
  Transmission Date: 20250409
  Serious: Yes (Life-Threatening, Hospitalization, Other)
  Sender: TEVA
  Company Number: GB-MHRA-EMIS-10477-2de6696e-0f51-4d24-ac37-21491e8b8139

PATIENT
  Age: 55 Year
  Sex: Female
  Weight: 48 kg

DRUGS (10)
  1. ALENDRONIC ACID [Suspect]
     Active Substance: ALENDRONIC ACID
     Indication: Product used for unknown indication
     Dosage: ONE TO BE TAKEN ON THE SAME DAY EACH WEEK, DAILY DOSE: 1 DOSAGE FORM DAILY, DURATION: 2863 DAYS
     Route: 065
     Dates: start: 20170104, end: 20241106
  2. SEA WATER [Concomitant]
     Active Substance: SEA WATER
     Indication: Product used for unknown indication
     Route: 065
     Dates: start: 20241009, end: 20241010
  3. COCODAMOL [Concomitant]
     Active Substance: ACETAMINOPHEN\CODEINE PHOSPHATE
     Indication: Product used for unknown indication
     Route: 065
     Dates: start: 20241028, end: 20241105
  4. CHLORHEXIDINE HYDROCHLORIDE\NEOMYCIN SULFATE [Concomitant]
     Active Substance: CHLORHEXIDINE HYDROCHLORIDE\NEOMYCIN SULFATE
     Indication: Product used for unknown indication
     Route: 045
     Dates: start: 20241009, end: 20241127
  5. Duomed [Concomitant]
     Indication: Product used for unknown indication
     Route: 065
     Dates: start: 20241022, end: 20241204
  6. METRONIDAZOLE [Concomitant]
     Active Substance: METRONIDAZOLE
     Indication: Product used for unknown indication
     Route: 065
     Dates: start: 20241108, end: 20241207
  7. SENNA [Concomitant]
     Active Substance: SENNOSIDES
     Indication: Product used for unknown indication
     Dosage: TWO TO BE TAKEN AT NIGHT IN BLISTER, DAILY DOSE: 2 DOSAGE FORMM DAILY
     Route: 065
     Dates: start: 20241114
  8. CODEINE [Concomitant]
     Active Substance: CODEINE
     Indication: Product used for unknown indication
     Route: 065
     Dates: start: 20241108, end: 20241114
  9. IBUPROFEN [Concomitant]
     Active Substance: IBUPROFEN
     Indication: Product used for unknown indication
     Route: 065
     Dates: start: 20240924, end: 20241106
  10. IVABRADINE [Concomitant]
     Active Substance: IVABRADINE
     Indication: Product used for unknown indication
     Dosage: ONE TO BE TAKEN TWICE A DAY, DAILY DOSE: 2 DOSAGE FORM DAILY
     Route: 050
     Dates: start: 20241114

REACTIONS (3)
  - Osteonecrosis of jaw [Not Recovered/Not Resolved]
  - Discharge [Unknown]
  - Abscess jaw [Unknown]
